FAERS Safety Report 8587203-X (Version None)
Quarter: 2012Q3

REPORT INFORMATION
  Report Type: 
  Country: None (occurrence: None)
  Receive Date: 20120810
  Receipt Date: 20110826
  Transmission Date: 20120928
  Serious: No
  Sender: FDA-Public Use
  Company Number: US-ASTRAZENECA-2011SE17537

PATIENT
  Age: 74 Year
  Sex: Female

DRUGS (1)
  1. ARIMIDEX [Suspect]
     Route: 048

REACTIONS (8)
  - HEARING IMPAIRED [None]
  - EAR CONGESTION [None]
  - SINUS CONGESTION [None]
  - MALAISE [None]
  - COORDINATION ABNORMAL [None]
  - ASTHENIA [None]
  - HEADACHE [None]
  - MEMORY IMPAIRMENT [None]
